FAERS Safety Report 8589921-6 (Version None)
Quarter: 2012Q3

REPORT INFORMATION
  Report Type: 
  Country: None (occurrence: None)
  Receive Date: 20120813
  Receipt Date: 20120808
  Transmission Date: 20120928
  Serious: Yes (Other)
  Sender: FDA-Public Use
  Company Number: PHEH2012US015659

PATIENT
  Age: 30 Year
  Sex: Female
  Weight: 76.19 kg

DRUGS (1)
  1. GILENYA [Suspect]
     Indication: MULTIPLE SCLEROSIS
     Dosage: 0.5 MG, QD
     Route: 048
     Dates: start: 20120301, end: 20120328

REACTIONS (5)
  - CHEST PAIN [None]
  - DIZZINESS [None]
  - VISUAL ACUITY REDUCED [None]
  - RESTLESSNESS [None]
  - DYSPNOEA [None]
